FAERS Safety Report 8320147-7 (Version None)
Quarter: 2012Q2

REPORT INFORMATION
  Report Type: 
  Country: None (occurrence: None)
  Receive Date: 20120430
  Receipt Date: 20120419
  Transmission Date: 20120825
  Serious: Yes (Hospitalization)
  Sender: FDA-Public Use
  Company Number: DE-BIOGENIDEC-2012BI004911

PATIENT
  Age: 50 Year
  Sex: Female

DRUGS (1)
  1. TYSABRI [Suspect]
     Indication: RELAPSING-REMITTING MULTIPLE SCLEROSIS
     Route: 042
     Dates: start: 20090701, end: 20110701

REACTIONS (7)
  - BILE DUCT CANCER NON-RESECTABLE [None]
  - CHOLANGITIS [None]
  - METASTASES TO PERITONEUM [None]
  - CHILLS [None]
  - KLEBSIELLA SEPSIS [None]
  - CHOLESTASIS [None]
  - GASTROINTESTINAL DISORDER [None]
